FAERS Safety Report 6111580-2 (Version None)
Quarter: 2009Q1

REPORT INFORMATION
  Report Type: 
  Country: None (occurrence: None)
  Receive Date: 20090309
  Receipt Date: 20090223
  Transmission Date: 20090719
  Serious: Yes (Other)
  Sender: FDA-Public Use
  Company Number: PI-02958

PATIENT
  Sex: Female

DRUGS (1)
  1. CHLORAPREP SINGLE SWABSTICK [Suspect]
     Indication: PREOPERATIVE CARE
     Dosage: 1.75 ML, ONCE, TOPICAL
     Route: 061
     Dates: start: 20090201

REACTIONS (4)
  - DIZZINESS [None]
  - PALPITATIONS [None]
  - RASH [None]
  - SNEEZING [None]
